FAERS Safety Report 16287787 (Version 2)
Quarter: 2019Q2

REPORT INFORMATION
  Report Type: Report from Study
  Country: MX (occurrence: MX)
  Receive Date: 20190508
  Receipt Date: 20190528
  Transmission Date: 20190711
  Serious: Yes (Other)
  Sender: FDA-Public Use
  Company Number: PHHY2019MX093378

PATIENT
  Sex: Male
  Weight: 66 kg

DRUGS (9)
  1. ENTRESTO [Suspect]
     Active Substance: SACUBITRIL\VALSARTAN
     Indication: INFARCTION
  2. ACETYLSALICYLIC ACID [Concomitant]
     Active Substance: ASPIRIN
     Indication: PROPHYLAXIS
     Dosage: 0.5 DF(300 MG), QD
     Route: 048
     Dates: start: 201505
  3. ENTRESTO [Suspect]
     Active Substance: SACUBITRIL\VALSARTAN
     Indication: CARDIAC FAILURE
  4. ENTRESTO [Suspect]
     Active Substance: SACUBITRIL\VALSARTAN
     Indication: HYPERTENSION
     Dosage: 1 DF (100 MG), QD
     Route: 048
     Dates: start: 2017
  5. DIGOXINE [Concomitant]
     Active Substance: DIGOXIN
     Indication: CARDIAC DISORDER
     Dosage: 1 DF (0.25 GM), Q24H
     Route: 048
     Dates: start: 201505
  6. SUCRALFATE. [Concomitant]
     Active Substance: SUCRALFATE
     Indication: LIVER DISORDER
     Dosage: 1 DF (1 GM), Q12H
     Route: 048
     Dates: start: 201505
  7. ENTRESTO [Suspect]
     Active Substance: SACUBITRIL\VALSARTAN
     Indication: BLOOD PRESSURE INCREASED
     Dosage: 1 DF (200 MG), QD
     Route: 048
     Dates: start: 201505, end: 2017
  8. XILIARXS-DUO [Suspect]
     Active Substance: METFORMIN HYDROCHLORIDE\VILDAGLIPTIN
     Indication: DIABETES MELLITUS
     Dosage: 1 DF (50 MG METFORMIN/850 MG VILDAGLIPTIN), BID
     Route: 048
     Dates: start: 201505
  9. ATORVASTATIN [Concomitant]
     Active Substance: ATORVASTATIN
     Indication: BLOOD CHOLESTEROL ABNORMAL
     Dosage: 1 DF (20 MG), Q24H
     Route: 048
     Dates: start: 201505

REACTIONS (5)
  - Product prescribing error [Unknown]
  - Blood pressure decreased [Recovered/Resolved]
  - Gastritis [Not Recovered/Not Resolved]
  - Hiatus hernia [Not Recovered/Not Resolved]
  - Hypotension [Recovered/Resolved]

NARRATIVE: CASE EVENT DATE: 2017
